FAERS Safety Report 4823406-5 (Version None)
Quarter: 2005Q4

REPORT INFORMATION
  Report Type: 
  Country: None (occurrence: None)
  Receive Date: 20051107
  Receipt Date: 20051019
  Transmission Date: 20060501
  Serious: Yes (Hospitalization)
  Sender: FDA-Public Use
  Company Number: JP_051007998

PATIENT
  Age: 27 Year
  Sex: Female

DRUGS (8)
  1. ZYPREXA [Suspect]
     Route: 048
     Dates: start: 20050418
  2. RISPERIDONE [Concomitant]
  3. BIPERIDEN HYDROCHLORIDE TAB [Concomitant]
  4. FLUPHENAZINE [Concomitant]
  5. CHLORPROMAZINE [Concomitant]
  6. PROMETHAZINE [Concomitant]
  7. PHENOBARBITAL [Concomitant]
  8. LEVOMEPROMAZINE [Concomitant]

REACTIONS (7)
  - BLOOD CREATINE PHOSPHOKINASE INCREASED [None]
  - DEPRESSED LEVEL OF CONSCIOUSNESS [None]
  - HAEMODIALYSIS [None]
  - MYOGLOBIN BLOOD INCREASED [None]
  - MYOGLOBIN URINE PRESENT [None]
  - OBSTRUCTIVE AIRWAYS DISORDER [None]
  - PYREXIA [None]
